FAERS Safety Report 9961393 (Version 1)
Quarter: 2014Q1

REPORT INFORMATION
  Report Type: Report from Study
  Country: US (occurrence: US)
  Receive Date: 20140305
  Receipt Date: 20140305
  Transmission Date: 20141002
  Serious: Yes (Hospitalization)
  Sender: FDA-Public Use
  Company Number: PHEH2014US004093

PATIENT
  Age: 62 Year
  Sex: Female

DRUGS (9)
  1. EXJADE [Suspect]
     Indication: MYELODYSPLASTIC SYNDROME
     Dosage: 3000 MG, DAILY, (MIX AND DRINK 6 TABLETS OF 500MG)
     Route: 048
     Dates: start: 201312
  2. ETODOLAC [Concomitant]
     Dosage: UNK UKN, UNK
  3. CITALOPRAM HBR [Concomitant]
     Dosage: UNK UKN, UNK
  4. LEVOTHYROXINE [Concomitant]
     Dosage: UNK UKN, UNK
  5. ASPIRIN [Concomitant]
     Dosage: UNK UKN, UNK
  6. OMEPRAZOLE [Concomitant]
     Dosage: UNK UKN, UNK
  7. BENADRYL ALLERGY [Concomitant]
     Dosage: UNK UKN, UNK
  8. IMODIUM A-D [Concomitant]
     Dosage: UNK UKN, UNK
  9. JAKAFI [Concomitant]
     Dosage: UNK UKN, UNK

REACTIONS (4)
  - Dyspnoea [Unknown]
  - Cough [Unknown]
  - Musculoskeletal chest pain [Unknown]
  - Abdominal pain [Unknown]
